FAERS Safety Report 16463013 (Version 3)
Quarter: 2019Q3

REPORT INFORMATION
  Report Type: Spontaneous
  Country: IT (occurrence: IT)
  Receive Date: 20190621
  Receipt Date: 20190906
  Transmission Date: 20191004
  Serious: Yes (Death, Other)
  Sender: FDA-Public Use
  Company Number: IT-SA-2019SA169230

PATIENT
  Age: 39 Year
  Sex: Female

DRUGS (11)
  1. CIPROFLOXACIN. [Concomitant]
     Active Substance: CIPROFLOXACIN
     Dosage: UNK UNK, UNK
     Route: 065
  2. CLARITHROMYCIN. [Concomitant]
     Active Substance: CLARITHROMYCIN
     Dosage: UNK UNK, UNK
     Route: 065
  3. OMEGA3+ JOY [Concomitant]
     Dosage: UNK UNK, UNK
     Route: 065
  4. OMEPRAZOLE. [Concomitant]
     Active Substance: OMEPRAZOLE
     Dosage: UNK UNK, UNK
     Route: 065
  5. MEROPENEM. [Concomitant]
     Active Substance: MEROPENEM
     Dosage: UNK UNK, UNK
     Route: 065
  6. TEICOPLANIN [Concomitant]
     Active Substance: TEICOPLANIN
     Dosage: UNK UNK, UNK
     Route: 065
  7. CEFTAZIDIME. [Concomitant]
     Active Substance: CEFTAZIDIME
     Dosage: UNK UNK, UNK
     Route: 065
  8. ALEMTUZUMAB [Suspect]
     Active Substance: ALEMTUZUMAB
     Indication: MULTIPLE SCLEROSIS
     Dosage: UNK
     Route: 042
     Dates: start: 20160901
  9. RAMIPRIL. [Concomitant]
     Active Substance: RAMIPRIL
     Dosage: UNK UNK, UNK
     Route: 065
  10. FLUCONAZOLE. [Concomitant]
     Active Substance: FLUCONAZOLE
     Dosage: UNK UNK, UNK
     Route: 065
  11. ALBUMIN [Concomitant]
     Active Substance: ALBUMIN HUMAN
     Dosage: UNK UNK, UNK
     Route: 065

REACTIONS (20)
  - Haemophagocytic lymphohistiocytosis [Fatal]
  - Autoimmune haemolytic anaemia [Fatal]
  - Thrombocytopenia [Unknown]
  - Asthenia [Unknown]
  - Abdominal pain [Unknown]
  - Serum ferritin increased [Unknown]
  - Loss of consciousness [Unknown]
  - Lymphoproliferative disorder [Unknown]
  - Pulmonary mass [Unknown]
  - Biopsy lymph gland abnormal [Unknown]
  - Vomiting [Fatal]
  - Hepatosplenomegaly [Unknown]
  - Hypertriglyceridaemia [Unknown]
  - Dyspnoea [Unknown]
  - Chest pain [Fatal]
  - Coombs direct test [Unknown]
  - Anaemia [Unknown]
  - Epstein-Barr virus infection [Unknown]
  - Nausea [Fatal]
  - Pyrexia [Fatal]

NARRATIVE: CASE EVENT DATE: 20190515
